FAERS Safety Report 5649400-2 (Version None)
Quarter: 2008Q1

REPORT INFORMATION
  Report Type: 
  Country: None (occurrence: None)
  Receive Date: 20080304
  Receipt Date: 20080221
  Transmission Date: 20080703
  Serious: Yes (Hospitalization)
  Sender: FDA-Public Use
  Company Number: US-BAYER-200814752NA

PATIENT
  Age: 84 Year
  Sex: Male

DRUGS (9)
  1. DACARBAZINE [Suspect]
     Indication: MALIGNANT MELANOMA
     Dates: start: 20071107, end: 20071226
  2. IPILIMUMAB OR PLACEBO [Suspect]
     Indication: MALIGNANT MELANOMA
     Route: 042
     Dates: start: 20071107, end: 20071226
  3. ZOCOR [Concomitant]
  4. TOPROL-XL [Concomitant]
  5. TAMOXIFEN CITRATE [Concomitant]
  6. PREDNISONE TAB [Concomitant]
  7. FLUCONAZOLE [Concomitant]
  8. IMODIUM [Concomitant]
  9. PRILOSEC [Concomitant]

REACTIONS (3)
  - DEHYDRATION [None]
  - DIARRHOEA [None]
  - SYNCOPE VASOVAGAL [None]
